FAERS Safety Report 10724412 (Version 3)
Quarter: 2015Q2

REPORT INFORMATION
  Report Type: Report from Study
  Country: US (occurrence: US)
  Receive Date: 20150120
  Receipt Date: 20150528
  Transmission Date: 20150821
  Serious: No
  Sender: FDA-Public Use
  Company Number: US-ALEXION-A201500123

PATIENT

DRUGS (1)
  1. SOLIRIS [Suspect]
     Active Substance: ECULIZUMAB
     Indication: HAEMOLYTIC URAEMIC SYNDROME
     Dosage: UNK
     Route: 042

REACTIONS (8)
  - Red blood cell count increased [Unknown]
  - Tenderness [Unknown]
  - Mean cell haemoglobin concentration abnormal [Unknown]
  - Blood cholesterol increased [Unknown]
  - Proteinuria [Unknown]
  - Catheter site discharge [Unknown]
  - Eosinophil count increased [Unknown]
  - White blood cell count decreased [Unknown]
